FAERS Safety Report 5571067-2 (Version None)
Quarter: 2007Q4

REPORT INFORMATION
  Report Type: 
  Country: None (occurrence: None)
  Receive Date: 20071219
  Receipt Date: 20071213
  Transmission Date: 20080405
  Serious: Yes (Other)
  Sender: FDA-Public Use
  Company Number: 021668

PATIENT
  Sex: Male

DRUGS (1)
  1. MEFLOQUINE HYDROCHLORIDE(MEFLOQUINE HYDROCHLORIDE) TABLET, 250MG [Suspect]
     Dates: start: 20040801, end: 20040901

REACTIONS (3)
  - COGNITIVE DISORDER [None]
  - MENTAL DISORDER [None]
  - PAIN [None]
